FAERS Safety Report 16146884 (Version 1)
Quarter: 2019Q2

REPORT INFORMATION
  Report Type: Spontaneous
  Country: JP (occurrence: JP)
  Receive Date: 20190402
  Receipt Date: 20190402
  Transmission Date: 20190711
  Serious: Yes (Hospitalization)
  Sender: FDA-Public Use
  Company Number: JP-ORPHAN EUROPE-2065117

PATIENT
  Age: 9 Month
  Sex: Male
  Weight: 8.16 kg

DRUGS (6)
  1. CYSTADANE [Suspect]
     Active Substance: BETAINE
     Indication: HOMOCYSTINURIA
     Dates: start: 20151222
  2. FRESMIN S [Concomitant]
     Active Substance: HYDROXOCOBALAMIN
  3. BIOTIINI [Concomitant]
  4. ELCARTIN [Concomitant]
  5. TEGRETOL [Concomitant]
     Active Substance: CARBAMAZEPINE
  6. BANAN [Concomitant]
     Active Substance: CEFPODOXIME PROXETIL

REACTIONS (1)
  - Upper respiratory tract inflammation [Recovering/Resolving]

NARRATIVE: CASE EVENT DATE: 20160629
